FAERS Safety Report 9190270 (Version 1)
Quarter: 2013Q1

REPORT INFORMATION
  Report Type: Spontaneous
  Country: US (occurrence: None)
  Receive Date: 20130325
  Receipt Date: 20130325
  Transmission Date: 20140127
  Serious: Yes (Other)
  Sender: FDA-Public Use
  Company Number: None

PATIENT
  Age: 47 Year
  Sex: Female
  Weight: 81.65 kg

DRUGS (1)
  1. RESPERIDOL CONSTA [Suspect]
     Indication: SCHIZOAFFECTIVE DISORDER

REACTIONS (4)
  - Feeling abnormal [None]
  - Activities of daily living impaired [None]
  - Paraesthesia [None]
  - Insomnia [None]
